FAERS Safety Report 5630208-9 (Version None)
Quarter: 2008Q1

REPORT INFORMATION
  Report Type: 
  Country: None (occurrence: None)
  Receive Date: 20080219
  Receipt Date: 20080212
  Transmission Date: 20080703
  Serious: Yes (Other)
  Sender: FDA-Public Use
  Company Number: DE-TEVA-167451USA

PATIENT
  Sex: Female

DRUGS (4)
  1. PIMOZIDE TABLETS [Suspect]
     Indication: DRUG USE FOR UNKNOWN INDICATION
     Dosage: 600 MG, IN 1 TOTAL
     Route: 048
     Dates: start: 20080131, end: 20080131
  2. CITALOPRAM HYDROBROMIDE [Suspect]
     Indication: DRUG USE FOR UNKNOWN INDICATION
     Dosage: 4600 MG, IN 1 TOTAL
     Route: 048
     Dates: start: 20080131
  3. ZOLPIDEM [Suspect]
     Indication: DRUG USE FOR UNKNOWN INDICATION
     Route: 048
     Dates: start: 20080131
  4. LORAZEPAM [Suspect]
     Indication: DRUG USE FOR UNKNOWN INDICATION
     Dosage: 50 MG, IN 1 TOTAL
     Route: 048
     Dates: start: 20080131

REACTIONS (4)
  - MULTIPLE DRUG OVERDOSE INTENTIONAL [None]
  - SOMNOLENCE [None]
  - SUICIDE ATTEMPT [None]
  - VOMITING [None]
